FAERS Safety Report 23883361 (Version 3)
Quarter: 2024Q2

REPORT INFORMATION
  Report Type: Spontaneous
  Country: IL (occurrence: IL)
  Receive Date: 20240522
  Receipt Date: 20240628
  Transmission Date: 20240716
  Serious: Yes (Other)
  Sender: FDA-Public Use
  Company Number: IL-GLAXOSMITHKLINE-IL2024EME063389

PATIENT

DRUGS (1)
  1. DOSTARLIMAB [Suspect]
     Active Substance: DOSTARLIMAB
     Indication: Endometrial cancer
     Dosage: UNK, 4 THREE-WEEKLY TREATMENTS OF 5000 MG AND 4 TREATMENTS EVERY 6 WEEKS OF 1000 MG
     Dates: start: 202307

REACTIONS (7)
  - Endometrial cancer metastatic [Unknown]
  - Malignant neoplasm progression [Unknown]
  - Metastases to liver [Unknown]
  - Tumour pseudoprogression [Unknown]
  - Mass [Unknown]
  - Carbohydrate antigen 125 increased [Recovering/Resolving]
  - Positron emission tomogram abnormal [Unknown]
